FAERS Safety Report 4519714-8 (Version None)
Quarter: 2004Q4

REPORT INFORMATION
  Report Type: 
  Country: None (occurrence: None)
  Receive Date: 20041206
  Receipt Date: 20030204
  Transmission Date: 20050328
  Serious: Yes (Other)
  Sender: FDA-Public Use
  Company Number: PHRM2003FR00706

PATIENT
  Age: 82 Year
  Sex: Male

DRUGS (4)
  1. LAMISIL [Suspect]
     Indication: NAIL TINEA
     Dosage: 250 MG, QD
     Route: 048
     Dates: start: 20020301, end: 20020401
  2. GLUCOPHAGE ^LIPHA^ [Concomitant]
     Indication: DIABETES MELLITUS
     Route: 048
  3. ZOCOR [Concomitant]
  4. GLUCIDORAL [Concomitant]
     Indication: DIABETES MELLITUS
     Route: 048

REACTIONS (7)
  - ASTHENIA [None]
  - DIABETES MELLITUS [None]
  - EYE OEDEMA [None]
  - GAMMA-GLUTAMYLTRANSFERASE INCREASED [None]
  - HYPERGLYCAEMIA [None]
  - RETINAL VEIN OCCLUSION [None]
  - VISUAL ACUITY REDUCED [None]
